FAERS Safety Report 5032940-7 (Version None)
Quarter: 2006Q2

REPORT INFORMATION
  Report Type: 
  Country: None (occurrence: None)
  Receive Date: 20060620
  Receipt Date: 20060614
  Transmission Date: 20061013
  Serious: Yes (Hospitalization)
  Sender: FDA-Public Use
  Company Number: 200613293BWH

PATIENT
  Age: 65 Year
  Sex: Male
  Weight: 96.2 kg

DRUGS (3)
  1. SORAFENIB [Suspect]
     Indication: ANGIOSARCOMA
     Dosage: 400 MG, BID, ORAL
     Route: 048
     Dates: start: 20051222, end: 20060515
  2. ASPIRIN [Concomitant]
  3. SYNTHROID [Concomitant]

REACTIONS (13)
  - ACUTE ABDOMEN [None]
  - ASCITES [None]
  - BRADYCARDIA [None]
  - DIARRHOEA [None]
  - DIVERTICULITIS [None]
  - GASTROINTESTINAL PERFORATION [None]
  - HYPERTENSION [None]
  - HYPOTENSION [None]
  - PALMAR-PLANTAR ERYTHRODYSAESTHESIA SYNDROME [None]
  - PROCEDURAL COMPLICATION [None]
  - RASH [None]
  - SMALL INTESTINAL PERFORATION [None]
  - VENTRICULAR TACHYCARDIA [None]
